FAERS Safety Report 8980176 (Version 4)
Quarter: 2013Q2

REPORT INFORMATION
  Report Type: Spontaneous
  Country: JP (occurrence: JP)
  Receive Date: 20121221
  Receipt Date: 20130415
  Transmission Date: 20140414
  Serious: Yes (Hospitalization, Other)
  Sender: FDA-Public Use
  Company Number: PHHY2012JP116578

PATIENT
  Age: 62 Year
  Sex: Male
  Weight: 73 kg

DRUGS (7)
  1. EQUA [Suspect]
     Indication: DIABETES MELLITUS
     Dosage: 50 MG, DAILY
     Route: 048
     Dates: start: 20121113, end: 20121210
  2. DIOVAN [Suspect]
     Indication: HYPERTENSION
     Dosage: 40 MG, DAILY
     Route: 048
     Dates: start: 20121023, end: 20121210
  3. BAYASPIRIN [Concomitant]
     Indication: MYOCARDIAL INFARCTION
     Dosage: 100 MG, UNK
     Route: 048
     Dates: start: 20121023
  4. BAYASPIRIN [Concomitant]
     Dosage: 100 MG, UNK
     Route: 048
  5. PLAVIX [Concomitant]
     Indication: MYOCARDIAL INFARCTION
     Dosage: 75 MG, UNK
     Route: 048
     Dates: start: 20121105, end: 20121213
  6. FAMOTIDINE [Concomitant]
     Indication: GASTRITIS
     Dosage: 20 MG, UNK
     Route: 048
     Dates: start: 20121023, end: 20121210
  7. CRESTOR [Concomitant]
     Indication: MYOCARDIAL INFARCTION
     Dosage: 25 MG, UNK
     Route: 048
     Dates: start: 20121023, end: 20121210

REACTIONS (2)
  - White blood cell count decreased [Recovered/Resolved]
  - Liver function test abnormal [Recovering/Resolving]
